FAERS Safety Report 24682308 (Version 1)
Quarter: 2024Q4

REPORT INFORMATION
  Report Type: Spontaneous
  Country: US (occurrence: US)
  Receive Date: 20241130
  Receipt Date: 20241130
  Transmission Date: 20250114
  Serious: No
  Sender: GLAXOSMITHKLINE
  Company Number: US-GSK-US2024145894

PATIENT
  Sex: Female

DRUGS (2)
  1. OJJAARA [Suspect]
     Active Substance: MOMELOTINIB DIHYDROCHLORIDE MONOHYDRATE
     Indication: Myelofibrosis
     Dosage: UNK
  2. OJJAARA [Suspect]
     Active Substance: MOMELOTINIB DIHYDROCHLORIDE MONOHYDRATE
     Indication: Anaemia

REACTIONS (2)
  - Formication [Unknown]
  - Product use in unapproved indication [Unknown]
